FAERS Safety Report 12878250 (Version 3)
Quarter: 2017Q1

REPORT INFORMATION
  Report Type: Spontaneous
  Country: GB (occurrence: GB)
  Receive Date: 20161024
  Receipt Date: 20170216
  Transmission Date: 20170428
  Serious: Yes (Death, Life-Threatening, Disabling)
  Sender: FDA-Public Use
  Company Number: GB-SA-2016SA193535

PATIENT
  Age: 14 Year
  Sex: Male
  Weight: 53.5 kg

DRUGS (18)
  1. THIOTEPA. [Concomitant]
     Active Substance: THIOTEPA
     Indication: STEM CELL TRANSPLANT
     Dosage: 15 MG/KG
     Dates: start: 2016, end: 2016
  2. AMBISONE [Concomitant]
     Active Substance: AMPHOTERICIN B
     Dosage: 3 MG/KG
  3. PRIMAQUINE [Concomitant]
     Active Substance: PRIMAQUINE PHOSPHATE
  4. FLUDARABINE PHOSPHATE. [Suspect]
     Active Substance: FLUDARABINE PHOSPHATE
     Indication: BONE MARROW TRANSPLANT
     Route: 042
     Dates: start: 20160303, end: 20160306
  5. PENICILLIN [Concomitant]
     Active Substance: PENICILLIN
  6. SEPTRIN [Concomitant]
     Active Substance: SULFAMETHOXAZOLE\TRIMETHOPRIM
  7. DAPSONE. [Concomitant]
     Active Substance: DAPSONE
  8. TREOSULFAN [Concomitant]
     Active Substance: TREOSULFAN
     Indication: STEM CELL TRANSPLANT
     Dates: start: 2016, end: 2016
  9. FLUDARABINE PHOSPHATE. [Suspect]
     Active Substance: FLUDARABINE PHOSPHATE
     Indication: BONE MARROW TRANSPLANT
     Dosage: DOSE- 57.5 MIU
     Route: 042
     Dates: start: 20160727, end: 20160730
  10. MYCOPHENOLATE MOFETIL. [Concomitant]
     Active Substance: MYCOPHENOLATE MOFETIL
  11. ITRACONAZOLE. [Concomitant]
     Active Substance: ITRACONAZOLE
  12. FOLINIC ACID [Concomitant]
     Active Substance: LEUCOVORIN
  13. ANTITHYMOCYTE IMMUNOGLOBULIN [Concomitant]
     Active Substance: THYMOCYTE IMMUNE GLOBULIN NOS
     Indication: STEM CELL TRANSPLANT
     Dosage: 7.5 MG/KG
  14. CLINDAMYCIN. [Concomitant]
     Active Substance: CLINDAMYCIN
  15. ACICLOVIR [Concomitant]
     Active Substance: ACYCLOVIR
  16. TOCILIZUMAB [Concomitant]
     Active Substance: TOCILIZUMAB
     Dosage: 4 MG/KG
  17. NOZINAN [Concomitant]
     Active Substance: LEVOMEPROMAZINE
  18. ALEMTUZUMAB [Concomitant]
     Active Substance: ALEMTUZUMAB
     Indication: STEM CELL TRANSPLANT
     Dates: start: 2016, end: 2016

REACTIONS (5)
  - Spinal cord injury [Fatal]
  - Respiratory failure [Not Recovered/Not Resolved]
  - Septic shock [Not Recovered/Not Resolved]
  - Brain injury [Fatal]
  - Locked-in syndrome [Not Recovered/Not Resolved]

NARRATIVE: CASE EVENT DATE: 2016
